FAERS Safety Report 6768891-7 (Version None)
Quarter: 2010Q2

REPORT INFORMATION
  Report Type: 
  Country: None (occurrence: None)
  Receive Date: 20100611
  Receipt Date: 20100601
  Transmission Date: 20101027
  Serious: Yes (Hospitalization, Congenital Anomaly)
  Sender: FDA-Public Use
  Company Number: LEO-2010-00474

PATIENT
  Sex: Female
  Weight: 1.765 kg

DRUGS (4)
  1. INNOHEP [Suspect]
     Indication: DRUG EXPOSURE DURING PREGNANCY
     Dates: start: 20050516, end: 20050715
  2. CELESTONE [Concomitant]
  3. CONFORTID (INDOMETACIN) [Concomitant]
  4. BRENTAN (MICONAZOLE) [Concomitant]

REACTIONS (4)
  - CAESAREAN SECTION [None]
  - CONGENITAL ANOMALY [None]
  - MATERNAL DRUGS AFFECTING FOETUS [None]
  - PREMATURE BABY [None]
